FAERS Safety Report 7162807-X (Version None)
Quarter: 2010Q4

REPORT INFORMATION
  Report Type: 
  Country: None (occurrence: None)
  Receive Date: 20101215
  Receipt Date: 20091217
  Transmission Date: 20110411
  Serious: Yes (Death, Hospitalization)
  Sender: FDA-Public Use
  Company Number: SE-PFIZER INC-2009301736

PATIENT
  Age: 61 Year
  Sex: Male
  Weight: 69.2 kg

DRUGS (14)
  1. BLINDED *NO SUBJECT DRUG [Suspect]
     Indication: PROSTATE CANCER
     Dosage: UNK
     Route: 048
     Dates: start: 20090630, end: 20091101
  2. BLINDED *PLACEBO [Suspect]
     Indication: PROSTATE CANCER
     Dosage: UNK
     Route: 048
     Dates: start: 20090630, end: 20091101
  3. SUNITINIB MALATE [Suspect]
     Indication: PROSTATE CANCER
     Dosage: UNK
     Route: 048
     Dates: start: 20090630, end: 20091101
  4. PREDNISOLONE [Suspect]
     Indication: PROSTATE CANCER
     Dosage: 5 MG, 2X/DAY
     Route: 048
     Dates: start: 20090630, end: 20091109
  5. ALFUZOSIN [Concomitant]
     Indication: BENIGN PROSTATIC HYPERPLASIA
     Dosage: UNK
     Dates: start: 20060101
  6. ZOLEDRONIC ACID [Concomitant]
     Indication: PROSTATE CANCER
     Dosage: UNK
     Dates: start: 20061117
  7. LANSOPRAZOLE [Concomitant]
     Indication: GASTRITIS PROPHYLAXIS
     Dosage: UNK
     Dates: start: 20070315
  8. ZOPICLONE [Concomitant]
     Indication: INSOMNIA
     Dosage: UNK
     Dates: start: 20090130
  9. METOCLOPRAMIDE [Concomitant]
     Indication: NAUSEA
     Dosage: UNK
     Dates: start: 20090317
  10. BETAMETHASONE [Concomitant]
     Indication: NAUSEA
     Dosage: UNK
     Dates: start: 20091109
  11. MECLOZINE [Concomitant]
     Indication: NAUSEA
     Dosage: UNK
     Dates: start: 20091109
  12. OXYCODONE [Concomitant]
     Indication: PAIN
     Dosage: UNK
     Dates: start: 20091109
  13. PARACETAMOL [Concomitant]
     Indication: PAIN
     Dosage: UNK
     Dates: start: 20090317
  14. PREDNISOLONE [Concomitant]
     Dosage: UNK
     Dates: start: 20091110

REACTIONS (5)
  - BONE PAIN [None]
  - EPISTAXIS [None]
  - MOUTH HAEMORRHAGE [None]
  - URINARY BLADDER HAEMORRHAGE [None]
  - UROSEPSIS [None]
